FAERS Safety Report 6597089-0 (Version None)
Quarter: 2010Q1

REPORT INFORMATION
  Report Type: 
  Country: None (occurrence: None)
  Receive Date: 20100223
  Receipt Date: 20100119
  Transmission Date: 20100710
  Serious: Yes (Other)
  Sender: FDA-Public Use
  Company Number: CA-PFIZER INC-2010018529

PATIENT

DRUGS (1)
  1. CHAMPIX [Suspect]

REACTIONS (4)
  - ABNORMAL BEHAVIOUR [None]
  - HYPERPHAGIA [None]
  - IMPAIRED DRIVING ABILITY [None]
  - POOR QUALITY SLEEP [None]
